FAERS Safety Report 8012792-3 (Version None)
Quarter: 2011Q4

REPORT INFORMATION
  Report Type: 
  Country: None (occurrence: None)
  Receive Date: 20111223
  Receipt Date: 20111223
  Transmission Date: 20120403
  Serious: Yes (Other)
  Sender: FDA-Public Use
  Company Number: None

PATIENT
  Age: 46 Year
  Sex: Female
  Weight: 63.5036 kg

DRUGS (1)
  1. REMICADE [Suspect]
     Indication: COLITIS ULCERATIVE
     Dosage: IV
     Route: 042
     Dates: start: 20111202

REACTIONS (11)
  - CHILLS [None]
  - MYALGIA [None]
  - ASTHENIA [None]
  - HEART RATE INCREASED [None]
  - PRURITUS [None]
  - VOMITING [None]
  - NAUSEA [None]
  - CONVULSION [None]
  - BACK PAIN [None]
  - DIARRHOEA [None]
  - ABDOMINAL PAIN [None]
